FAERS Safety Report 25878305 (Version 1)
Quarter: 2025Q4

REPORT INFORMATION
  Report Type: Spontaneous
  Country: US (occurrence: None)
  Receive Date: 20251002
  Receipt Date: 20251002
  Transmission Date: 20260118
  Serious: Yes (Disabling)
  Sender: FDA-CTU
  Company Number: None

PATIENT
  Age: 63 Year
  Sex: Female
  Weight: 65.25 kg

DRUGS (1)
  1. CIPROFLOXACIN [Suspect]
     Active Substance: CIPROFLOXACIN
     Indication: Salmonella sepsis
     Dates: start: 20100804, end: 20100904

REACTIONS (21)
  - Gastrointestinal disorder [None]
  - Gastrooesophageal reflux disease [None]
  - Gastritis haemorrhagic [None]
  - Food allergy [None]
  - Coeliac disease [None]
  - Lactose intolerance [None]
  - Weight decreased [None]
  - Aortic disorder [None]
  - Muscle atrophy [None]
  - Collagen disorder [None]
  - Neuralgia [None]
  - Tendonitis [None]
  - Arthralgia [None]
  - Retinal tear [None]
  - Tinnitus [None]
  - Fatigue [None]
  - Malaise [None]
  - Brain fog [None]
  - Fibromyalgia [None]
  - Epstein-Barr virus infection reactivation [None]
  - General physical health deterioration [None]

NARRATIVE: CASE EVENT DATE: 20100804
